FAERS Safety Report 7963900-1 (Version None)
Quarter: 2011Q4

REPORT INFORMATION
  Report Type: 
  Country: None (occurrence: None)
  Receive Date: 20111208
  Receipt Date: 20111110
  Transmission Date: 20120403
  Serious: No
  Sender: FDA-Public Use
  Company Number: US-BAYER-2011-109743

PATIENT
  Weight: 81.179 kg

DRUGS (6)
  1. POTASSIUM CHLORIDE [Concomitant]
  2. VITAMIN B12 [Concomitant]
  3. ALEVE (CAPLET) [Suspect]
     Indication: BACK PAIN
     Dosage: 1 DF, BID
     Route: 048
  4. VITAMIN D [COLECALCIFEROL] [Concomitant]
  5. CALTRATE [CALCIUM CARBONATE] [Concomitant]
  6. ASCORBIC ACID [Concomitant]

REACTIONS (2)
  - DRUG EFFECT DECREASED [None]
  - NO ADVERSE EVENT [None]
